FAERS Safety Report 12428005 (Version 4)
Quarter: 2016Q3

REPORT INFORMATION
  Report Type: Spontaneous
  Country: US (occurrence: US)
  Receive Date: 20160602
  Receipt Date: 20160706
  Transmission Date: 20161109
  Serious: Yes (Other)
  Sender: FDA-Public Use
  Company Number: US-SA-2016SA030755

PATIENT
  Age: 61 Year
  Sex: Female

DRUGS (2)
  1. ICY HOT MEDICATED NO MESS APPLICATOR [Suspect]
     Active Substance: MENTHOL
     Route: 065
     Dates: start: 20160123, end: 20160210
  2. ICY HOT MEDICATED NO MESS APPLICATOR [Suspect]
     Active Substance: MENTHOL
     Route: 065
     Dates: start: 20160123, end: 20160210

REACTIONS (10)
  - Burns second degree [Recovered/Resolved]
  - Blister [Unknown]
  - Scar [Unknown]
  - Wound infection [Recovered/Resolved]
  - Swelling [Unknown]
  - Burning sensation [Unknown]
  - Scab [Unknown]
  - Erythema [Unknown]
  - Wound [Unknown]
  - Pain [Unknown]
